FAERS Safety Report 6375838-4 (Version None)
Quarter: 2009Q3

REPORT INFORMATION
  Report Type: 
  Country: None (occurrence: None)
  Receive Date: 20090924
  Receipt Date: 20090915
  Transmission Date: 20100115
  Serious: Yes (Hospitalization)
  Sender: FDA-Public Use
  Company Number: US-ELI_LILLY_AND_COMPANY-US200909003573

PATIENT
  Sex: Female
  Weight: 131.52 kg

DRUGS (9)
  1. BYETTA [Suspect]
     Indication: TYPE 2 DIABETES MELLITUS
     Dosage: 5 UG, 2/D
     Route: 058
     Dates: start: 20081101, end: 20081201
  2. BYETTA [Suspect]
     Dosage: 10 UG, 2/D
     Route: 058
     Dates: start: 20081201
  3. SYNTHROID [Concomitant]
     Indication: HYPOTHYROIDISM
     Dosage: UNK, UNKNOWN
  4. MILNACIPRAN HYDROCHLORIDE [Concomitant]
     Indication: FIBROMYALGIA
     Dosage: UNK, UNKNOWN
  5. SANCTURA [Concomitant]
     Dosage: UNK, UNKNOWN
  6. PAXIL [Concomitant]
     Indication: DEPRESSION
     Dosage: UNK, UNKNOWN
  7. AMBIEN [Concomitant]
     Indication: INSOMNIA
     Dosage: UNK, UNKNOWN
  8. AMITRIPTYLINE [Concomitant]
     Indication: FIBROMYALGIA
     Dosage: UNK, UNKNOWN
  9. METFORMIN [Concomitant]
     Indication: TYPE 2 DIABETES MELLITUS
     Dosage: UNK, UNKNOWN
     Dates: end: 20081101

REACTIONS (8)
  - ABDOMINAL PAIN UPPER [None]
  - BLOOD CHOLESTEROL INCREASED [None]
  - DECREASED APPETITE [None]
  - GALLBLADDER DISORDER [None]
  - OFF LABEL USE [None]
  - PRURITUS GENERALISED [None]
  - VOMITING [None]
  - WEIGHT DECREASED [None]
